FAERS Safety Report 13094937 (Version 3)
Quarter: 2017Q4

REPORT INFORMATION
  Report Type: Spontaneous
  Country: US (occurrence: US)
  Receive Date: 20170106
  Receipt Date: 20171114
  Transmission Date: 20180320
  Serious: No
  Sender: FDA-Public Use
  Company Number: US-ACTELION-A-US2016-147728

PATIENT
  Age: 54 Year
  Sex: Female

DRUGS (1)
  1. OPSUMIT [Suspect]
     Active Substance: MACITENTAN
     Indication: PULMONARY HYPERTENSION
     Dosage: 10 MG, QD
     Route: 048
     Dates: start: 20161130

REACTIONS (5)
  - Hypoaesthesia [Unknown]
  - Dizziness [Unknown]
  - Memory impairment [Unknown]
  - Drug ineffective [Unknown]
  - Raynaud^s phenomenon [Unknown]
